FAERS Safety Report 11804050 (Version 2)
Quarter: 2015Q4

REPORT INFORMATION
  Report Type: Spontaneous
  Country: US (occurrence: US)
  Receive Date: 20151204
  Receipt Date: 20151229
  Transmission Date: 20160305
  Serious: No
  Sender: FDA-Public Use
  Company Number: US-PFIZER INC-2015426367

PATIENT
  Age: 79 Year
  Sex: Male

DRUGS (1)
  1. XELJANZ [Suspect]
     Active Substance: TOFACITINIB CITRATE
     Dosage: UNK

REACTIONS (9)
  - Hypersensitivity [Unknown]
  - Gingival blister [Unknown]
  - Dysphagia [Unknown]
  - Stomatitis [Unknown]
  - Oral mucosal blistering [Unknown]
  - Lip blister [Unknown]
  - Noninfective gingivitis [Unknown]
  - Tongue blistering [Unknown]
  - Cheilitis [Unknown]
